FAERS Safety Report 23053059 (Version 4)
Quarter: 2023Q4

REPORT INFORMATION
  Report Type: Report from Study
  Country: CA (occurrence: CA)
  Receive Date: 20231011
  Receipt Date: 20231120
  Transmission Date: 20240109
  Serious: Yes (Other)
  Sender: FDA-Public Use
  Company Number: CA-JNJFOC-20230655087

PATIENT
  Age: 30 Year
  Sex: Female
  Weight: 55 kg

DRUGS (5)
  1. STELARA [Suspect]
     Active Substance: USTEKINUMAB
     Indication: Crohn^s disease
     Dosage: (3 VIALS) INFUSED IV AT WEEK 0.?PATIENT HAD LOADING INFUSION ON 21-JUN-2023
     Route: 042
     Dates: start: 20230619, end: 202306
  2. STELARA [Suspect]
     Active Substance: USTEKINUMAB
     Dosage: DUE FOR INJECTION ON 08-AUG-2023
     Route: 058
     Dates: end: 2023
  3. VITAMIN B12 [Concomitant]
     Active Substance: CYANOCOBALAMIN
     Indication: Product used for unknown indication
     Route: 065
  4. FISH OIL [Concomitant]
     Active Substance: FISH OIL
     Indication: Product used for unknown indication
     Route: 065
  5. ETHINYL ESTRADIOL\NORGESTIMATE [Concomitant]
     Active Substance: ETHINYL ESTRADIOL\NORGESTIMATE
     Indication: Product used for unknown indication
     Route: 065

REACTIONS (18)
  - Haematochezia [Not Recovered/Not Resolved]
  - Glassy eyes [Recovered/Resolved]
  - Swelling face [Recovered/Resolved]
  - Nasopharyngitis [Unknown]
  - Hypotension [Recovered/Resolved]
  - Headache [Recovered/Resolved]
  - Infusion related reaction [Recovered/Resolved]
  - Inflammatory marker increased [Not Recovered/Not Resolved]
  - Mucous stools [Not Recovered/Not Resolved]
  - Defaecation urgency [Not Recovered/Not Resolved]
  - Periorbital swelling [Recovering/Resolving]
  - Gastrointestinal inflammation [Unknown]
  - Abdominal pain [Recovering/Resolving]
  - Fatigue [Unknown]
  - Dizziness [Unknown]
  - Diarrhoea [Not Recovered/Not Resolved]
  - Drug ineffective [Unknown]
  - Inappropriate schedule of product administration [Unknown]

NARRATIVE: CASE EVENT DATE: 20230101
